FAERS Safety Report 5025766-1 (Version None)
Quarter: 2006Q2

REPORT INFORMATION
  Report Type: 
  Country: None (occurrence: None)
  Receive Date: 20060614
  Receipt Date: 20060608
  Transmission Date: 20061013
  Serious: Yes (Other)
  Sender: FDA-Public Use
  Company Number: DE-AVENTIS-200611723DE

PATIENT
  Sex: Male

DRUGS (1)
  1. TRENTAL [Suspect]
     Indication: DEAFNESS
     Route: 042
     Dates: start: 20060101, end: 20060101

REACTIONS (1)
  - BLOOD PRESSURE INCREASED [None]
